FAERS Safety Report 14748577 (Version 1)
Quarter: 2018Q2

REPORT INFORMATION
  Report Type: Spontaneous
  Country: US (occurrence: US)
  Receive Date: 20180411
  Receipt Date: 20180411
  Transmission Date: 20180711
  Serious: No
  Sender: FDA-Public Use
  Company Number: US-AMGEN-USASP2017166555

PATIENT
  Age: 83 Year
  Sex: Female

DRUGS (1)
  1. PROLIA [Suspect]
     Active Substance: DENOSUMAB
     Indication: PRODUCT USED FOR UNKNOWN INDICATION
     Dosage: UNK
     Route: 065
     Dates: start: 20170728

REACTIONS (12)
  - Dyspepsia [Not Recovered/Not Resolved]
  - Decreased appetite [Recovering/Resolving]
  - Headache [Recovering/Resolving]
  - Fungal infection [Unknown]
  - Fatigue [Recovering/Resolving]
  - Pain in extremity [Unknown]
  - Muscle spasms [Unknown]
  - Diarrhoea [Unknown]
  - Eructation [Unknown]
  - Vomiting [Unknown]
  - Hot flush [Unknown]
  - Nausea [Recovering/Resolving]

NARRATIVE: CASE EVENT DATE: 2017
